FAERS Safety Report 8936947 (Version 1)
Quarter: 2012Q4

REPORT INFORMATION
  Report Type: 
  Country: CA (occurrence: CA)
  Receive Date: 20121130
  Receipt Date: 20121130
  Transmission Date: 20130627
  Serious: Yes (Other)
  Sender: FDA-Public Use
  Company Number: CA-ROCHE-1162450

PATIENT
  Sex: Female

DRUGS (3)
  1. XOLAIR [Suspect]
     Indication: PRODUCT USED FOR UNKNOWN INDICATION
     Route: 065
     Dates: start: 20070926
  2. MOXIFLOXACIN [Concomitant]
     Route: 048
  3. AMBROXOL HYDROCHLORIDE [Concomitant]

REACTIONS (2)
  - Asthma [Unknown]
  - Infection [Unknown]
